FAERS Safety Report 8388339-9 (Version None)
Quarter: 2012Q2

REPORT INFORMATION
  Report Type: 
  Country: None (occurrence: None)
  Receive Date: 20120525
  Receipt Date: 20120201
  Transmission Date: 20120825
  Serious: Yes (Hospitalization)
  Sender: FDA-Public Use
  Company Number: FR-FRI-1000024171

PATIENT
  Sex: Male

DRUGS (10)
  1. PREDNISONE TAB [Suspect]
     Dosage: 1 DF
     Route: 048
     Dates: start: 20110501
  2. RENAGEL [Suspect]
     Dosage: 1 DF
     Route: 048
  3. ARANESP [Suspect]
     Dosage: 0.0667 DF
  4. CALCIPARINE [Suspect]
     Route: 058
     Dates: start: 20110708, end: 20110808
  5. CITALOPRAM HYDROBROMIDE [Suspect]
     Route: 048
  6. DEPAKENE [Suspect]
     Dosage: 2 DF
     Route: 048
     Dates: start: 20110716
  7. EUPRESSYL [Suspect]
     Dosage: 3 DF
     Route: 048
     Dates: start: 20110529
  8. KAYEXALATE [Suspect]
     Dosage: 0.4286 DF
     Dates: start: 20110603
  9. CALCIUM CARBONATE [Suspect]
     Route: 048
  10. LEVETIRACETAM [Concomitant]

REACTIONS (3)
  - THROMBOCYTOPENIA [None]
  - ANAEMIA [None]
  - CONDITION AGGRAVATED [None]
